FAERS Safety Report 8448510-4 (Version None)
Quarter: 2012Q2

REPORT INFORMATION
  Report Type: 
  Country: None (occurrence: None)
  Receive Date: 20120619
  Receipt Date: 20120606
  Transmission Date: 20120825
  Serious: Yes (Other)
  Sender: FDA-Public Use
  Company Number: JP-ROCHE-1076992

PATIENT
  Age: 34 Year
  Sex: Male

DRUGS (2)
  1. AVASTIN [Suspect]
     Indication: GLAUCOMA
     Dosage: DOSAGE IS UNCERTAIN.
     Route: 031
  2. AVASTIN [Suspect]
     Dosage: DOSAGE IS UNCERTAIN.
     Route: 031

REACTIONS (1)
  - ATROPHY OF GLOBE [None]
